FAERS Safety Report 18397288 (Version 1)
Quarter: 2020Q4

REPORT INFORMATION
  Report Type: Spontaneous
  Country: US (occurrence: US)
  Receive Date: 20201017
  Receipt Date: 20201017
  Transmission Date: 20210114
  Serious: Yes (Other)
  Sender: FDA-Public Use
  Company Number: None

PATIENT
  Age: 41 Year
  Sex: Male
  Weight: 114.75 kg

DRUGS (10)
  1. HALOPERIDOL. [Suspect]
     Active Substance: HALOPERIDOL
     Indication: BIPOLAR DISORDER
     Dosage: ?          QUANTITY:1 TABLET(S);?
     Route: 048
     Dates: start: 20201003, end: 20201004
  2. PRAVASTATIN. [Concomitant]
     Active Substance: PRAVASTATIN
  3. CPAP [Concomitant]
     Active Substance: DEVICE
  4. MULTIVITAMIN [Concomitant]
     Active Substance: VITAMINS
  5. HALOPERIDOL. [Suspect]
     Active Substance: HALOPERIDOL
     Indication: SCHIZOPHRENIA
     Dosage: ?          QUANTITY:1 TABLET(S);?
     Route: 048
     Dates: start: 20201003, end: 20201004
  6. CHLORPROMAZINE HCL [Suspect]
     Active Substance: CHLORPROMAZINE HYDROCHLORIDE
  7. METOPROLOL. [Concomitant]
     Active Substance: METOPROLOL
  8. BENZTROPINE MESYLA TAB .05MG [Suspect]
     Active Substance: BENZTROPINE MESYLATE
  9. GEODON [Concomitant]
     Active Substance: ZIPRASIDONE HYDROCHLORIDE\ZIPRASIDONE MESYLATE
  10. OMEGA-3 ACIDS [Concomitant]
     Active Substance: OMEGA-3 FATTY ACIDS

REACTIONS (4)
  - Blood glucose increased [None]
  - Insomnia [None]
  - Nightmare [None]
  - Muscle twitching [None]

NARRATIVE: CASE EVENT DATE: 20201003
